FAERS Safety Report 22382258 (Version 6)
Quarter: 2025Q3

REPORT INFORMATION
  Report Type: Spontaneous
  Country: JP (occurrence: JP)
  Receive Date: 20230530
  Receipt Date: 20250808
  Transmission Date: 20251020
  Serious: Yes (Other)
  Sender: ASTELLAS
  Company Number: JP-ASTELLAS-2023JP004030

PATIENT
  Age: 72 Year
  Sex: Female
  Weight: 57 kg

DRUGS (14)
  1. PADCEV [Suspect]
     Active Substance: ENFORTUMAB VEDOTIN-EJFV
     Indication: Ureteric cancer metastatic
     Route: 042
     Dates: start: 20230315, end: 20230315
  2. PADCEV [Suspect]
     Active Substance: ENFORTUMAB VEDOTIN-EJFV
     Route: 042
     Dates: start: 20230322, end: 20230322
  3. PADCEV [Suspect]
     Active Substance: ENFORTUMAB VEDOTIN-EJFV
     Route: 042
     Dates: start: 20230412, end: 20230419
  4. PADCEV [Suspect]
     Active Substance: ENFORTUMAB VEDOTIN-EJFV
     Route: 042
     Dates: start: 20230426, end: 20230426
  5. PADCEV [Suspect]
     Active Substance: ENFORTUMAB VEDOTIN-EJFV
     Route: 042
     Dates: start: 20230510, end: 20230510
  6. ATORVASTATIN [Concomitant]
     Active Substance: ATORVASTATIN
     Indication: Dyslipidaemia
     Route: 048
     Dates: start: 20230314
  7. Heparinoid lotion [Concomitant]
     Indication: Drug eruption
     Route: 003
     Dates: start: 20230316
  8. Olopatadine hydrochloride tablet [Concomitant]
     Indication: Drug eruption
     Route: 065
     Dates: start: 20230322
  9. Olopatadine hydrochloride tablet [Concomitant]
     Route: 065
     Dates: start: 20230328
  10. CLOBETASOL [Concomitant]
     Active Substance: CLOBETASOL
     Indication: Drug eruption
     Route: 065
     Dates: start: 20230322
  11. Voalla ointment [Concomitant]
     Indication: Drug eruption
     Route: 003
     Dates: start: 20230322
  12. Heparinoid oily cream 0.3% [Concomitant]
     Indication: Drug eruption
     Route: 003
     Dates: start: 20230322
  13. BETAMETHASONE BUTYRATE PROPIONATE [Concomitant]
     Active Substance: BETAMETHASONE BUTYRATE PROPIONATE
     Indication: Drug eruption
     Route: 065
     Dates: start: 20230327
  14. Zinc oxide ointment [Concomitant]
     Indication: Drug eruption
     Route: 065
     Dates: start: 20230327

REACTIONS (4)
  - Malignant neoplasm progression [Not Recovered/Not Resolved]
  - Drug eruption [Recovered/Resolved]
  - Oedema peripheral [Recovered/Resolved]
  - Alopecia [Recovered/Resolved]

NARRATIVE: CASE EVENT DATE: 20230321
